FAERS Safety Report 8624144 (Version 3)
Quarter: 2015Q3

REPORT INFORMATION
  Report Type: Report from Study
  Country: US (occurrence: US)
  Receive Date: 20120620
  Receipt Date: 20150703
  Transmission Date: 20151125
  Serious: Yes (Hospitalization)
  Sender: FDA-Public Use
  Company Number: US-ROCHE-1078927

PATIENT
  Sex: Female

DRUGS (2)
  1. PEGASYS [Suspect]
     Active Substance: PEGINTERFERON ALFA-2A
     Indication: CHRONIC HEPATITIS C
     Route: 058
     Dates: start: 20100319, end: 20100623
  2. COPEGUS [Suspect]
     Active Substance: RIBAVIRIN
     Indication: CHRONIC HEPATITIS C
     Dosage: 3 TABLET (600MG)  EVERY MORNING AND 2 TABLET (400MG) EVERY EVENING
     Route: 048
     Dates: start: 20100319, end: 20100623

REACTIONS (4)
  - Pyrexia [Unknown]
  - Pneumonia [Unknown]
  - Chills [Unknown]
  - Weight decreased [Unknown]
